FAERS Safety Report 16353478 (Version 1)
Quarter: 2019Q2

REPORT INFORMATION
  Report Type: Spontaneous
  Country: JP (occurrence: JP)
  Receive Date: 20190524
  Receipt Date: 20190524
  Transmission Date: 20190711
  Serious: Yes (Hospitalization, Other)
  Sender: FDA-Public Use
  Company Number: JP-MYLANLABS-2019M1049017

PATIENT
  Age: 67 Year
  Sex: Female

DRUGS (2)
  1. CLOPIDOGREL [Suspect]
     Active Substance: CLOPIDOGREL BISULFATE
     Indication: ANTIPLATELET THERAPY
     Route: 048
  2. BAYASPIRIN [Suspect]
     Active Substance: ASPIRIN
     Indication: ANTIPLATELET THERAPY
     Route: 048

REACTIONS (5)
  - Asthenia [Recovering/Resolving]
  - Quadriplegia [Recovering/Resolving]
  - Brown-Sequard syndrome [Recovering/Resolving]
  - Spinal epidural haematoma [Recovered/Resolved]
  - Spinal cord compression [Recovering/Resolving]
